FAERS Safety Report 9034318 (Version 1)
Quarter: 2013Q1

REPORT INFORMATION
  Report Type: Spontaneous
  Country: US (occurrence: None)
  Receive Date: 20130116
  Receipt Date: 20130116
  Transmission Date: 20140127
  Serious: No
  Sender: FDA-Public Use
  Company Number: None

PATIENT
  Age: 23 Year
  Sex: Female
  Weight: 61.24 kg

DRUGS (1)
  1. DEPO PROVERA SHOT 3 MONTH DOSAGE PFIZER [Suspect]
     Indication: CONTRACEPTION
     Dates: start: 20120701, end: 20120930

REACTIONS (1)
  - Loss of libido [None]
